FAERS Safety Report 22189963 (Version 1)
Quarter: 2023Q2

REPORT INFORMATION
  Report Type: Spontaneous
  Country: UZ (occurrence: UZ)
  Receive Date: 20230410
  Receipt Date: 20230410
  Transmission Date: 20230721
  Serious: Yes (Death)
  Sender: FDA-Public Use
  Company Number: UZ-JNJFOC-20211135254

PATIENT
  Age: 53 Year
  Sex: Male
  Weight: 110 kg

DRUGS (9)
  1. SIRTURO [Suspect]
     Active Substance: BEDAQUILINE FUMARATE
     Indication: Pulmonary tuberculosis
     Route: 048
     Dates: start: 20200930, end: 20201014
  2. SIRTURO [Suspect]
     Active Substance: BEDAQUILINE FUMARATE
     Route: 048
     Dates: start: 20201015, end: 20210922
  3. LINEZOLID [Suspect]
     Active Substance: LINEZOLID
     Indication: Pulmonary tuberculosis
     Dosage: 600
     Route: 048
     Dates: start: 20200930, end: 20210814
  4. LINEZOLID [Suspect]
     Active Substance: LINEZOLID
     Dosage: 300
     Route: 048
     Dates: start: 20210814, end: 20210922
  5. LEVOFLOXACIN [Suspect]
     Active Substance: LEVOFLOXACIN
     Indication: Pulmonary tuberculosis
     Dosage: 1000
     Route: 048
     Dates: start: 20200930, end: 20201005
  6. CYCLOSERINE [Suspect]
     Active Substance: CYCLOSERINE
     Indication: Pulmonary tuberculosis
     Dosage: 750
     Route: 048
     Dates: start: 20200930, end: 20210813
  7. CYCLOSERINE [Suspect]
     Active Substance: CYCLOSERINE
     Route: 048
     Dates: start: 20210814, end: 20210922
  8. CLOFAZIMINE [Suspect]
     Active Substance: CLOFAZIMINE
     Indication: Pulmonary tuberculosis
     Dosage: 100
     Route: 048
     Dates: start: 20200930, end: 20210922
  9. DELAMANID [Suspect]
     Active Substance: DELAMANID
     Indication: Pulmonary tuberculosis
     Dosage: 100 X2 TIMES A DAY
     Route: 048
     Dates: start: 20201006, end: 20210922

REACTIONS (3)
  - Cardiac failure congestive [Fatal]
  - Pulmonary embolism [Fatal]
  - Chronic kidney disease [Fatal]

NARRATIVE: CASE EVENT DATE: 20211019
